FAERS Safety Report 9449823 (Version 2)
Quarter: 2013Q4

REPORT INFORMATION
  Report Type: Report from Study
  Country: BR (occurrence: BR)
  Receive Date: 20130809
  Receipt Date: 20131025
  Transmission Date: 20140711
  Serious: Yes (Other)
  Sender: FDA-Public Use
  Company Number: PHHY2013BR085000

PATIENT
  Sex: Male
  Weight: 84 kg

DRUGS (12)
  1. SIMULECT [Suspect]
     Indication: RENAL TRANSPLANT
     Dosage: UNK UKN, UNK
     Route: 042
     Dates: start: 20121117
  2. SIMULECT [Suspect]
     Dosage: UNK UKN, UNK
     Route: 042
     Dates: start: 20121121
  3. EVEROLIMUS [Suspect]
     Indication: RENAL TRANSPLANT
     Dosage: 1.5 MG, Q12H
     Dates: start: 20121118
  4. EVEROLIMUS [Suspect]
     Dosage: 2 MG, Q12H
     Dates: start: 20121203
  5. TACROLIMUS [Suspect]
     Indication: RENAL TRANSPLANT
     Dosage: 8 MG, 0.1MG/KG/DOSE EVERY 12 HOURS
  6. TACROLIMUS [Suspect]
     Dosage: 5 MG, EVERY 12 HOURS
     Dates: start: 20121124, end: 20121130
  7. PREDNISONE [Suspect]
     Indication: RENAL TRANSPLANT
     Dosage: 30 MG, PER DAY
  8. PREDNISONE [Suspect]
     Dosage: 5 MG, PER DAY
     Dates: start: 20130521
  9. MYFORTIC [Concomitant]
     Indication: RENAL TRANSPLANT
     Dosage: 360 MG, EVERY 12 HOURS
  10. MYFORTIC [Concomitant]
     Dosage: 720 MG, EVERY 12 HOURS
     Dates: start: 20130521
  11. RANITIDINE [Concomitant]
     Indication: GASTRIC DISORDER
     Dosage: UNK UKN, BID
     Route: 048
     Dates: start: 20121118
  12. BACTRIN [Concomitant]
     Indication: PROPHYLAXIS
     Dosage: UNK UKN, QD
     Route: 048
     Dates: start: 20121118, end: 20121125

REACTIONS (6)
  - Haemolytic uraemic syndrome [Unknown]
  - Anaemia [Not Recovered/Not Resolved]
  - Renal impairment [Recovering/Resolving]
  - Renal tubular necrosis [Not Recovered/Not Resolved]
  - Thrombotic microangiopathy [Not Recovered/Not Resolved]
  - Thrombocytopenia [Recovering/Resolving]
